FAERS Safety Report 17244317 (Version 3)
Quarter: 2020Q2

REPORT INFORMATION
  Report Type: Spontaneous
  Country: US (occurrence: US)
  Receive Date: 20200107
  Receipt Date: 20200424
  Transmission Date: 20200713
  Serious: Yes (Other)
  Sender: FDA-Public Use
  Company Number: US-GILEAD-2019-0444761

PATIENT
  Age: 40 Year
  Sex: Male

DRUGS (73)
  1. DESCOVY [Concomitant]
     Active Substance: EMTRICITABINE\TENOFOVIR ALAFENAMIDE FUMARATE
  2. TIMOLOL. [Concomitant]
     Active Substance: TIMOLOL
  3. METOPROLOL. [Concomitant]
     Active Substance: METOPROLOL
  4. DIPHENHYDRAMINE. [Concomitant]
     Active Substance: DIPHENHYDRAMINE
  5. GAVILYTE - C [Concomitant]
     Active Substance: POLYETHYLENE GLYCOL 3350\POTASSIUM CHLORIDE\SODIUM BICARBONATE\SODIUM CHLORIDE\SODIUM SULFATE ANHYDROUS
  6. FLUTICASONE. [Concomitant]
     Active Substance: FLUTICASONE
  7. JANUVIA [Concomitant]
     Active Substance: SITAGLIPTIN PHOSPHATE
  8. LIPITOR [Concomitant]
     Active Substance: ATORVASTATIN CALCIUM
  9. ZOLPIDEM [Concomitant]
     Active Substance: ZOLPIDEM TARTRATE
  10. MUPIROCIN. [Concomitant]
     Active Substance: MUPIROCIN
  11. TESTOSTERONE. [Concomitant]
     Active Substance: TESTOSTERONE
  12. TENOFOVIR DISOPROXIL FUMARATE. [Concomitant]
     Active Substance: TENOFOVIR DISOPROXIL FUMARATE
  13. DIOVAN [Concomitant]
     Active Substance: VALSARTAN
  14. BRIMONIDINE [Concomitant]
     Active Substance: BRIMONIDINE TARTRATE
  15. BUPROPION. [Concomitant]
     Active Substance: BUPROPION
  16. CLONIDINE. [Concomitant]
     Active Substance: CLONIDINE
  17. IBUPROFEN. [Concomitant]
     Active Substance: IBUPROFEN
  18. RENAL CAP [Concomitant]
  19. CLOTRIMAZOLE AND BETAMETHASONE [Concomitant]
     Active Substance: BETAMETHASONE\CLOTRIMAZOLE
  20. DOCUSATE SODIUM. [Concomitant]
     Active Substance: DOCUSATE SODIUM
  21. SEVELAMER CARBONATE. [Concomitant]
     Active Substance: SEVELAMER CARBONATE
  22. SYMTUZA [Concomitant]
     Active Substance: COBICISTAT\DARUNAVIR\EMTRICITABINE\TENOFOVIR ALAFENAMIDE
  23. LOSARTAN. [Concomitant]
     Active Substance: LOSARTAN
  24. DIDANOSINE. [Concomitant]
     Active Substance: DIDANOSINE
  25. DORZOLAMIDE [Concomitant]
     Active Substance: DORZOLAMIDE
  26. PLAVIX [Concomitant]
     Active Substance: CLOPIDOGREL BISULFATE
  27. ISENTRESS [Concomitant]
     Active Substance: RALTEGRAVIR POTASSIUM
  28. OXYCODONE [Concomitant]
     Active Substance: OXYCODONE
  29. NAMENDA [Concomitant]
     Active Substance: MEMANTINE HYDROCHLORIDE
  30. NORVIR [Concomitant]
     Active Substance: RITONAVIR
  31. MORPHINE SULFATE. [Concomitant]
     Active Substance: MORPHINE SULFATE
  32. ALPRAZOLAM. [Concomitant]
     Active Substance: ALPRAZOLAM
  33. MINOXIDIL. [Concomitant]
     Active Substance: MINOXIDIL
  34. RENA-VITE [Concomitant]
     Active Substance: ASCORBIC ACID\BIOTIN\CALCIUM PANTOTHENATE\CYANOCOBALAMIN\FOLIC ACID\NIACINAMIDE\PYRIDOXINE HYDROCHLORIDE\RIBOFLAVIN\THIAMINE MONONITRATE
  35. HYDRALAZINE [Concomitant]
     Active Substance: HYDRALAZINE HYDROCHLORIDE
  36. LABETALOL [Concomitant]
     Active Substance: LABETALOL\LABETALOL HYDROCHLORIDE
  37. DIPHENHIST [Concomitant]
     Active Substance: DIPHENHYDRAMINE HYDROCHLORIDE
  38. PREDNISONE. [Concomitant]
     Active Substance: PREDNISONE
  39. TRUVADA [Suspect]
     Active Substance: EMTRICITABINE\TENOFOVIR DISOPROXIL FUMARATE
     Dosage: UNK
     Route: 048
     Dates: start: 201110, end: 201401
  40. EPIVIR [Concomitant]
     Active Substance: LAMIVUDINE
  41. HUMALOG [Concomitant]
     Active Substance: INSULIN LISPRO
  42. NIFEDIPINE. [Concomitant]
     Active Substance: NIFEDIPINE
  43. PREDNISOLONE. [Concomitant]
     Active Substance: PREDNISOLONE
  44. CLOBETASOL [Concomitant]
     Active Substance: CLOBETASOL
  45. TRAZODONE [Concomitant]
     Active Substance: TRAZODONE HYDROCHLORIDE
  46. MEMANTINE. [Concomitant]
     Active Substance: MEMANTINE
  47. RITONAVIR. [Concomitant]
     Active Substance: RITONAVIR
  48. NOVASOURCE 2.0 [Concomitant]
  49. NEOMYCIN / POLY B / DEXAMETHASONE [Concomitant]
     Active Substance: DEXAMETHASONE\NEOMYCIN SULFATE\POLYMYXIN B SULFATE
  50. KETOCONAZOLE. [Concomitant]
     Active Substance: KETOCONAZOLE
  51. SENNALAX [SENNA ALEXANDRINA EXTRACT] [Concomitant]
  52. TRAVATAN [Concomitant]
     Active Substance: TRAVOPROST
  53. AMMONIUM LACTATE. [Concomitant]
     Active Substance: AMMONIUM LACTATE
  54. BOOST [Concomitant]
     Active Substance: DIETARY SUPPLEMENT
  55. PAROXETINE. [Concomitant]
     Active Substance: PAROXETINE
  56. NITROGLYCERINE [Concomitant]
     Active Substance: NITROGLYCERIN
  57. CLONAZEPAM. [Concomitant]
     Active Substance: CLONAZEPAM
  58. CLOTRIMAZOLE. [Concomitant]
     Active Substance: CLOTRIMAZOLE
  59. GABAPENTIN. [Concomitant]
     Active Substance: GABAPENTIN
  60. RENAGEL [SEVELAMER CARBONATE] [Concomitant]
  61. NOVOLOG [Concomitant]
     Active Substance: INSULIN ASPART
  62. ATROPINE OPHTHALMIC [Concomitant]
  63. FAMOTIDINE. [Concomitant]
     Active Substance: FAMOTIDINE
  64. TERBINAFINE. [Concomitant]
     Active Substance: TERBINAFINE
  65. TRUVADA [Suspect]
     Active Substance: EMTRICITABINE\TENOFOVIR DISOPROXIL FUMARATE
     Indication: HIV INFECTION
     Dosage: UNK
     Route: 048
     Dates: start: 2006, end: 2015
  66. TRUVADA [Suspect]
     Active Substance: EMTRICITABINE\TENOFOVIR DISOPROXIL FUMARATE
     Dosage: UNK
     Route: 065
     Dates: start: 2007, end: 2014
  67. RISPERIDONE. [Concomitant]
     Active Substance: RISPERIDONE
  68. PREZISTA [Concomitant]
     Active Substance: DARUNAVIR ETHANOLATE
  69. APO-OXYCODONE/ACETAMINOPHEN [Concomitant]
     Active Substance: ACETAMINOPHEN\OXYCODONE HYDROCHLORIDE
  70. CEPHALEXIN AMEL [Concomitant]
     Active Substance: CEPHALEXIN
  71. QUETIAPINE. [Concomitant]
     Active Substance: QUETIAPINE
  72. TIVICAY [Concomitant]
     Active Substance: DOLUTEGRAVIR SODIUM
  73. SULFAMETHOXAZOLE [Concomitant]
     Active Substance: SULFAMETHOXAZOLE

REACTIONS (8)
  - Emotional distress [Unknown]
  - Renal failure [Not Recovered/Not Resolved]
  - Bone density decreased [Unknown]
  - Anhedonia [Unknown]
  - Tooth loss [Recovered/Resolved]
  - Anxiety [Unknown]
  - Economic problem [Unknown]
  - Pain [Unknown]

NARRATIVE: CASE EVENT DATE: 20081202
